FAERS Safety Report 9116489 (Version 1)
Quarter: 2013Q1

REPORT INFORMATION
  Report Type: Spontaneous
  Country: US (occurrence: US)
  Receive Date: 20130225
  Receipt Date: 20130225
  Transmission Date: 20140127
  Serious: No
  Sender: FDA-Public Use
  Company Number: US-PFIZER INC-2013064335

PATIENT
  Sex: Female

DRUGS (10)
  1. MORPHINE SULFATE [Suspect]
     Dosage: UNK
  2. ATIVAN [Suspect]
     Dosage: UNK
  3. IODINE [Suspect]
     Dosage: UNK
  4. ELAVIL [Suspect]
     Dosage: UNK
  5. PAXIL [Suspect]
     Dosage: UNK
  6. VICODIN [Suspect]
     Dosage: UNK
  7. LASIX [Suspect]
     Dosage: UNK
  8. AREDIA [Suspect]
     Dosage: UNK
  9. AMBIEN [Suspect]
     Dosage: UNK
  10. CAFFEINE [Suspect]
     Dosage: UNK

REACTIONS (1)
  - Drug hypersensitivity [Unknown]
